FAERS Safety Report 5988368-6 (Version None)
Quarter: 2008Q4

REPORT INFORMATION
  Report Type: 
  Country: None (occurrence: None)
  Receive Date: 20081204
  Receipt Date: 20081118
  Transmission Date: 20090506
  Serious: Yes (Other)
  Sender: FDA-Public Use
  Company Number: 8039664

PATIENT
  Age: 44 Year
  Sex: Female
  Weight: 81.6 kg

DRUGS (1)
  1. TUSSIONEX [Suspect]
     Indication: COUGH
     Dosage: 2/D PO
     Route: 048
     Dates: start: 20081110, end: 20081118

REACTIONS (2)
  - ANAPHYLACTIC REACTION [None]
  - NO REACTION ON PREVIOUS EXPOSURE TO DRUG [None]
